FAERS Safety Report 12823965 (Version 3)
Quarter: 2016Q4

REPORT INFORMATION
  Report Type: Spontaneous
  Country: US (occurrence: US)
  Receive Date: 20161006
  Receipt Date: 20161101
  Transmission Date: 20170207
  Serious: Yes (Hospitalization)
  Sender: FDA-Public Use
  Company Number: US-ACTELION-A-US2016-143052

PATIENT
  Age: 55 Year
  Sex: Female

DRUGS (12)
  1. DOCUSATE SODIUM. [Concomitant]
     Active Substance: DOCUSATE SODIUM
     Indication: CONSTIPATION
     Dosage: 100 MG, BID,PRN
     Route: 048
  2. NITROGLYCERINE [Concomitant]
     Active Substance: NITROGLYCERIN
     Dosage: 1 INCH 6HRS
     Route: 061
  3. SYNTHROID [Concomitant]
     Active Substance: LEVOTHYROXINE SODIUM
     Dosage: 88 MCG, QD
     Route: 048
  4. PAROXETINE. [Concomitant]
     Active Substance: PAROXETINE
     Dosage: 60 MG, QAM
     Route: 048
  5. BUPROPION. [Concomitant]
     Active Substance: BUPROPION
     Dosage: 450 MG, QD
     Route: 048
  6. MORPHINE SULFATE. [Concomitant]
     Active Substance: MORPHINE SULFATE
     Dosage: 30 MG, TID
     Route: 048
  7. NIFEDIPINE. [Concomitant]
     Active Substance: NIFEDIPINE
     Dosage: 60 MG, QD
     Route: 048
  8. TEMAZEPAM. [Concomitant]
     Active Substance: TEMAZEPAM
     Dosage: 15 MG, PRN QHS
     Route: 048
  9. TRAZODONE [Concomitant]
     Active Substance: TRAZODONE HYDROCHLORIDE
     Dosage: 300 MG, QHS
     Route: 048
  10. TRACLEER [Suspect]
     Active Substance: BOSENTAN
     Indication: PULMONARY ARTERIAL HYPERTENSION
     Dosage: 62.5 MG, BID
     Route: 048
     Dates: start: 20160825, end: 20161018
  11. DIAZEPAM. [Concomitant]
     Active Substance: DIAZEPAM
     Dosage: 5 MG, TID PRN
     Route: 048
  12. SIMVASTATIN. [Concomitant]
     Active Substance: SIMVASTATIN
     Dosage: 20 MG, QD
     Route: 048

REACTIONS (5)
  - Concomitant disease aggravated [Unknown]
  - Gangrene [Unknown]
  - Peripheral ischaemia [Recovered/Resolved]
  - Foot amputation [Recovered/Resolved]
  - Leg amputation [Unknown]

NARRATIVE: CASE EVENT DATE: 20161011
